FAERS Safety Report 24111470 (Version 1)
Quarter: 2024Q3

REPORT INFORMATION
  Report Type: Spontaneous
  Country: CA (occurrence: CA)
  Receive Date: 20240718
  Receipt Date: 20240718
  Transmission Date: 20241016
  Serious: Yes (Death)
  Sender: EISAI
  Company Number: CA-Eisai Medical Research-EC-2023-149321

PATIENT
  Age: 25 Year
  Sex: Female

DRUGS (8)
  1. FYCOMPA [Suspect]
     Active Substance: PERAMPANEL
     Indication: Seizure
     Dosage: DOSE AND FREQUENCY UNKNOWN
     Route: 048
  2. CARBAMAZEPINE [Suspect]
     Active Substance: CARBAMAZEPINE
     Indication: Seizure
     Dosage: DOSE AND FREQUENCY UNKNOWN
  3. CLOBAZAM [Suspect]
     Active Substance: CLOBAZAM
     Indication: Seizure
     Dosage: DOSE AND FREQUENCY UNKNOWN
  4. LACOSAMIDE [Suspect]
     Active Substance: LACOSAMIDE
     Indication: Seizure
     Dosage: DOSE AND FREQUENCY UNKNOWN
  5. LAMOTRIGINE [Suspect]
     Active Substance: LAMOTRIGINE
     Indication: Seizure
     Dosage: DOSE AND FREQUENCY UNKNOWN
  6. LEVETIRACETAM [Suspect]
     Active Substance: LEVETIRACETAM
     Indication: Seizure
     Dosage: DOSE AND FREQUENCY UNKNOWN
  7. TOPIRAMATE [Suspect]
     Active Substance: TOPIRAMATE
     Indication: Seizure
     Dosage: DOSE AND FREQUENCY UNKNOWN
  8. VALPROIC ACID [Suspect]
     Active Substance: VALPROIC ACID
     Indication: Seizure
     Dosage: DOSE AND FREQUENCY UNKNOWN

REACTIONS (3)
  - General physical health deterioration [Fatal]
  - Multiple-drug resistance [Fatal]
  - Drug ineffective [Unknown]
